FAERS Safety Report 7429176-9 (Version None)
Quarter: 2011Q2

REPORT INFORMATION
  Report Type: 
  Country: None (occurrence: None)
  Receive Date: 20110421
  Receipt Date: 20110418
  Transmission Date: 20111010
  Serious: Yes (Other)
  Sender: FDA-Public Use
  Company Number: US-ROCHE-770796

PATIENT
  Sex: Female

DRUGS (5)
  1. CLONIDINE [Concomitant]
     Indication: HYPERTENSION
  2. PEGASYS [Suspect]
     Indication: HEPATITIS C
     Route: 065
     Dates: start: 20110325
  3. LISINOPRIL [Concomitant]
     Indication: HYPERTENSION
  4. RIBAVIRIN [Suspect]
     Indication: HEPATITIS C
     Dosage: DIVIDED DOSES
     Route: 065
     Dates: start: 20110325
  5. HYDROCHLOROTHIAZIDE [Concomitant]
     Indication: HYPERTENSION

REACTIONS (9)
  - FALL [None]
  - PAIN [None]
  - OROPHARYNGEAL PAIN [None]
  - COUGH [None]
  - DIZZINESS [None]
  - BALANCE DISORDER [None]
  - EAR PAIN [None]
  - INFLUENZA LIKE ILLNESS [None]
  - HYPERTENSION [None]
